FAERS Safety Report 6395504-9 (Version None)
Quarter: 2009Q4

REPORT INFORMATION
  Report Type: 
  Country: None (occurrence: None)
  Receive Date: 20091007
  Receipt Date: 20090923
  Transmission Date: 20100525
  Serious: Yes (Death, Life-Threatening, Hospitalization)
  Sender: FDA-Public Use
  Company Number: 2004BI000076

PATIENT
  Age: 63 Year
  Sex: Male
  Weight: 90.7194 kg

DRUGS (13)
  1. ZEVALIN [Suspect]
     Indication: B-CELL LYMPHOMA RECURRENT
     Dosage: 5 MCI;1X;IV
     Route: 042
     Dates: start: 20041102, end: 20041109
  2. RITUXIMAB [Concomitant]
  3. CHLORAMBUCIL [Concomitant]
  4. CYCLOPHOSPHAMIDE [Concomitant]
  5. DOXORUBICIN HCL [Concomitant]
  6. VINCRISTINE [Concomitant]
  7. PREDNISONE TAB [Concomitant]
  8. DEXAMETHASONE 0.5MG TAB [Concomitant]
  9. ROBITUSSIN [Concomitant]
  10. ERYTHROMYCIN [Concomitant]
  11. BIAXIN [Concomitant]
  12. PRIMAXIN [Concomitant]
  13. ZITHROMAX [Concomitant]

REACTIONS (16)
  - ASTHMA [None]
  - ATRIAL FIBRILLATION [None]
  - BLOOD LACTATE DEHYDROGENASE INCREASED [None]
  - DRUG HYPERSENSITIVITY [None]
  - EOSINOPHILIA [None]
  - EYE DISORDER [None]
  - GENERAL PHYSICAL HEALTH DETERIORATION [None]
  - HAEMODIALYSIS [None]
  - LYMPHOCYTE COUNT DECREASED [None]
  - MEDICAL DEVICE COMPLICATION [None]
  - MULTI-ORGAN FAILURE [None]
  - NEUTROPENIA [None]
  - RENAL FAILURE [None]
  - RESPIRATORY DISORDER [None]
  - STAPHYLOCOCCAL INFECTION [None]
  - TOXIC EPIDERMAL NECROLYSIS [None]
